FAERS Safety Report 11045883 (Version 4)
Quarter: 2016Q3

REPORT INFORMATION
  Report Type: Spontaneous
  Country: US (occurrence: US)
  Receive Date: 20150417
  Receipt Date: 20160706
  Transmission Date: 20161109
  Serious: Yes (Disabling, Other)
  Sender: FDA-Public Use
  Company Number: US-009507513-1504USA017057

PATIENT
  Sex: Male

DRUGS (5)
  1. KLONOPIN [Concomitant]
     Active Substance: CLONAZEPAM
     Indication: PANIC DISORDER
     Dosage: UNK UNK, UNKNOWN
     Route: 048
     Dates: start: 1997
  2. PROPECIA [Suspect]
     Active Substance: FINASTERIDE
     Dosage: UNK, QD
     Route: 048
     Dates: start: 200309, end: 200408
  3. METOPROLOL. [Concomitant]
     Active Substance: METOPROLOL
     Indication: ARRHYTHMIA
     Dosage: UNK, UNKNOWN
     Route: 048
     Dates: start: 199305
  4. PROPECIA [Suspect]
     Active Substance: FINASTERIDE
     Dosage: 1.0 MG, QD
     Route: 048
     Dates: start: 200501, end: 200512
  5. PROPECIA [Suspect]
     Active Substance: FINASTERIDE
     Indication: ALOPECIA
     Dosage: 1 MG, QD
     Route: 048
     Dates: start: 2001, end: 2003

REACTIONS (26)
  - Painful ejaculation [Unknown]
  - Sexual dysfunction [Unknown]
  - Sleep apnoea syndrome [Unknown]
  - Anxiety [Unknown]
  - Testicular disorder [Unknown]
  - Peyronie^s disease [Not Recovered/Not Resolved]
  - Erectile dysfunction [Not Recovered/Not Resolved]
  - Pruritus [Unknown]
  - Arrhythmia [Unknown]
  - Brain injury [Not Recovered/Not Resolved]
  - Hormone level abnormal [Unknown]
  - Loss of libido [Unknown]
  - Anogenital warts [Unknown]
  - Basal cell carcinoma [Unknown]
  - Diverticulum [Unknown]
  - Agoraphobia [Unknown]
  - Brain injury [Unknown]
  - Penile size reduced [Unknown]
  - Penis injury [Not Recovered/Not Resolved]
  - Hyperlipidaemia [Unknown]
  - Hormone level abnormal [Not Recovered/Not Resolved]
  - Endocrine disorder [Not Recovered/Not Resolved]
  - Sexual dysfunction [Not Recovered/Not Resolved]
  - Depression [Unknown]
  - Hypertension [Unknown]
  - Ejaculation disorder [Unknown]

NARRATIVE: CASE EVENT DATE: 2001
